FAERS Safety Report 24380891 (Version 1)
Quarter: 2024Q3

REPORT INFORMATION
  Report Type: Spontaneous
  Country: US (occurrence: IN)
  Receive Date: 20240930
  Receipt Date: 20240930
  Transmission Date: 20241016
  Serious: Yes (Other)
  Sender: MERCK
  Company Number: US-009507513-2409USA008388

PATIENT
  Age: 67 Year
  Sex: Female

DRUGS (1)
  1. KEYTRUDA [Suspect]
     Active Substance: PEMBROLIZUMAB
     Indication: Thyroid cancer stage IV
     Dosage: 200 MILLIGRAM, Q3W
     Dates: start: 20240918

REACTIONS (3)
  - Hallucination [Unknown]
  - Malignant neoplasm progression [Unknown]
  - Radiotherapy [Unknown]

NARRATIVE: CASE EVENT DATE: 20240901
